FAERS Safety Report 4825914-X (Version None)
Quarter: 2005Q4

REPORT INFORMATION
  Report Type: 
  Country: None (occurrence: None)
  Receive Date: 20051110
  Receipt Date: 20051110
  Transmission Date: 20060501
  Serious: Yes (Hospitalization)
  Sender: FDA-Public Use
  Company Number: None

PATIENT
  Sex: Female
  Weight: 48 kg

DRUGS (2)
  1. CYMBALTA [Suspect]
     Indication: DEPRESSION
     Dosage: 30MG DAILY    (WITHIN PAST 4 MONTHS TO)
  2. CIPRO [Suspect]
     Indication: LOCALISED INFECTION
     Dosage: 250MG  BID
     Dates: start: 20051023

REACTIONS (11)
  - ALANINE AMINOTRANSFERASE INCREASED [None]
  - ASPARTATE AMINOTRANSFERASE INCREASED [None]
  - BLOOD BILIRUBIN INCREASED [None]
  - BLOOD CREATININE INCREASED [None]
  - BLOOD UREA INCREASED [None]
  - INTERNATIONAL NORMALISED RATIO INCREASED [None]
  - JAUNDICE [None]
  - NEPHRITIS ALLERGIC [None]
  - NEPHRITIS INTERSTITIAL [None]
  - PLATELET COUNT DECREASED [None]
  - RASH [None]
